FAERS Safety Report 4691305-8 (Version None)
Quarter: 2005Q2

REPORT INFORMATION
  Report Type: 
  Country: None (occurrence: None)
  Receive Date: 20050610
  Receipt Date: 20050602
  Transmission Date: 20051028
  Serious: Yes (Other)
  Sender: FDA-Public Use
  Company Number: 2005056167

PATIENT
  Age: 27 Year
  Sex: Female
  Weight: 81.6475 kg

DRUGS (2)
  1. CYTOTEC [Suspect]
     Indication: ABORTION INDUCED
     Dosage: 800 MCG (ONCE), VAGINAL
     Route: 067
     Dates: start: 20041223
  2. MIFEPREX [Suspect]
     Indication: ABORTION INDUCED
     Dosage: 200 MG (200 MG, ONCE),ORAL
     Route: 048
     Dates: start: 20041222

REACTIONS (4)
  - DRUG EXPOSURE DURING PREGNANCY [None]
  - DRUG INEFFECTIVE [None]
  - ENDOMETRITIS DECIDUAL [None]
  - THROMBOSIS [None]
